FAERS Safety Report 5922081-6 (Version None)
Quarter: 2008Q4

REPORT INFORMATION
  Report Type: 
  Country: None (occurrence: None)
  Receive Date: 20081017
  Receipt Date: 20081013
  Transmission Date: 20090506
  Serious: Yes (Hospitalization)
  Sender: FDA-Public Use
  Company Number: B0541767A

PATIENT
  Sex: Female
  Weight: 68 kg

DRUGS (3)
  1. LAPATINIB [Suspect]
     Indication: BREAST CANCER
     Dosage: 1000MG PER DAY
     Route: 048
     Dates: start: 20080222
  2. PACLITAXEL [Suspect]
     Indication: BREAST CANCER
     Dosage: 313MG EVERY 3 WEEKS
     Route: 042
     Dates: start: 20080222
  3. MYOCET [Suspect]
     Indication: BREAST CANCER
     Dosage: 107MG THREE TIMES PER WEEK
     Route: 042
     Dates: start: 20080222

REACTIONS (2)
  - LEUKOPENIA [None]
  - PYREXIA [None]
